FAERS Safety Report 20523146 (Version 1)
Quarter: 2022Q1

REPORT INFORMATION
  Report Type: Spontaneous
  Country: CA (occurrence: CA)
  Receive Date: 20220227
  Receipt Date: 20220227
  Transmission Date: 20220423
  Serious: Yes (Hospitalization)
  Sender: FDA-Public Use
  Company Number: None

PATIENT
  Age: 87 Year
  Sex: Female
  Weight: 59 kg

DRUGS (19)
  1. METHOTREXATE [Suspect]
     Active Substance: METHOTREXATE
     Indication: Psoriatic arthropathy
     Dosage: SOLUTION INTRA- ARTERIAL
     Route: 058
  2. ACETAMINOPHEN [Concomitant]
     Active Substance: ACETAMINOPHEN
  3. AMITRIPTYLINE HYDROCHLORIDE W/PERPH [Concomitant]
  4. AMLODIPINE [Concomitant]
     Active Substance: AMLODIPINE BESYLATE
  5. ATENOLOL [Concomitant]
     Active Substance: ATENOLOL
  6. ATORVASTATIN [Concomitant]
     Active Substance: ATORVASTATIN
  7. CALCIUM [Concomitant]
     Active Substance: CALCIUM
  8. CIPROFLOXACIN [Concomitant]
     Active Substance: CIPROFLOXACIN
  9. CITALOPRAM [Concomitant]
     Active Substance: CITALOPRAM HYDROBROMIDE
  10. DENOSUMAB [Concomitant]
     Active Substance: DENOSUMAB
     Route: 058
  11. FERROUS SULFATE [Concomitant]
     Active Substance: FERROUS SULFATE
  12. FOLIC ACID [Concomitant]
     Active Substance: FOLIC ACID
  13. VITAMINS [Concomitant]
     Active Substance: VITAMINS
  14. NABILONE [Concomitant]
     Active Substance: NABILONE
  15. PANTOPRAZOLE [Concomitant]
     Active Substance: PANTOPRAZOLE
  16. PREDNISONE [Concomitant]
     Active Substance: PREDNISONE
  17. GUSELKUMAB [Concomitant]
     Active Substance: GUSELKUMAB
     Dosage: 1ML PRE FILLED SYRINGE
     Route: 058
  18. VALTREX [Concomitant]
     Active Substance: VALACYCLOVIR HYDROCHLORIDE
  19. VITAMIN D [Concomitant]
     Active Substance: VITAMIN D NOS

REACTIONS (11)
  - Acute kidney injury [Unknown]
  - Cerebral haemorrhage [Unknown]
  - Delirium [Unknown]
  - Mouth haemorrhage [Unknown]
  - Mouth ulceration [Unknown]
  - Mucosal inflammation [Unknown]
  - Oral herpes [Unknown]
  - Pancytopenia [Unknown]
  - Pneumonia [Unknown]
  - Urinary tract infection [Unknown]
  - Weight decreased [Unknown]
